FAERS Safety Report 24196210 (Version 1)
Quarter: 2024Q3

REPORT INFORMATION
  Report Type: Spontaneous
  Country: GB (occurrence: GB)
  Receive Date: 20240809
  Receipt Date: 20240809
  Transmission Date: 20241017
  Serious: Yes (Other)
  Sender: ELI LILLY AND CO
  Company Number: None

PATIENT
  Age: 31 Year
  Sex: Female
  Weight: 99 kg

DRUGS (1)
  1. MOUNJARO [Suspect]
     Active Substance: TIRZEPATIDE
     Indication: Product used for unknown indication
     Dosage: 2.5 MG, WEEKLY (1/W)
     Route: 065
     Dates: start: 20240724

REACTIONS (6)
  - Confusional state [Recovering/Resolving]
  - Neck pain [Recovered/Resolved]
  - Tremor [Recovered/Resolved]
  - Chills [Not Recovered/Not Resolved]
  - Anxiety [Not Recovered/Not Resolved]
  - Blood glucose decreased [Unknown]

NARRATIVE: CASE EVENT DATE: 20240728
